FAERS Safety Report 10810621 (Version 1)
Quarter: 2015Q1

REPORT INFORMATION
  Report Type: Report from Study
  Country: US (occurrence: US)
  Receive Date: 20150217
  Receipt Date: 20150217
  Transmission Date: 20150721
  Serious: No
  Sender: FDA-Public Use
  Company Number: US-ABBVIE-14K-163-1270201-00

PATIENT
  Age: 65 Year
  Sex: Female

DRUGS (11)
  1. PROCARDIA [Concomitant]
     Active Substance: NIFEDIPINE
     Indication: BLOOD PRESSURE
  2. PLAQUENIL [Concomitant]
     Active Substance: HYDROXYCHLOROQUINE SULFATE
     Indication: PRODUCT USED FOR UNKNOWN INDICATION
  3. SYNTHROID [Concomitant]
     Active Substance: LEVOTHYROXINE SODIUM
     Indication: HYPOTHYROIDISM
  4. NALTREXONE [Concomitant]
     Active Substance: NALTREXONE
     Indication: PAIN
  5. TRIAMTERENE AND HYDROCHLOROTHIAZID [Concomitant]
     Active Substance: HYDROCHLOROTHIAZIDE\TRIAMTERENE
     Indication: BLOOD PRESSURE
     Dosage: 50 MG/75 MG
  6. CELEBREX [Concomitant]
     Active Substance: CELECOXIB
     Indication: PAIN
  7. SULFASALAZINE. [Concomitant]
     Active Substance: SULFASALAZINE
     Indication: PRODUCT USED FOR UNKNOWN INDICATION
     Dosage: 1500-2000 MG EVERY MORNING AND AFTER DINNER
  8. IMURAN [Concomitant]
     Active Substance: AZATHIOPRINE
     Indication: REITER^S SYNDROME
     Dosage: EVERY MORNING AND AT BEDTIME
  9. HORIZANT [Concomitant]
     Active Substance: GABAPENTIN ENACARBIL
     Indication: MIGRAINE
     Dosage: AT BEDTIME
  10. HUMIRA [Suspect]
     Active Substance: ADALIMUMAB
     Indication: CROHN^S DISEASE
     Dates: start: 20140617
  11. CEVIMELINE HCL [Concomitant]
     Indication: SJOGREN^S SYNDROME

REACTIONS (3)
  - Haematochezia [Not Recovered/Not Resolved]
  - Frequent bowel movements [Not Recovered/Not Resolved]
  - Abdominal pain [Not Recovered/Not Resolved]

NARRATIVE: CASE EVENT DATE: 201407
